FAERS Safety Report 19956379 (Version 1)
Quarter: 2021Q4

REPORT INFORMATION
  Report Type: Report from Study
  Country: NL (occurrence: NL)
  Receive Date: 20211014
  Receipt Date: 20211014
  Transmission Date: 20220304
  Serious: Yes (Other)
  Sender: FDA-Public Use
  Company Number: NL-AMGEN-NLDSL2021032876

PATIENT
  Age: 78 Year
  Sex: Male

DRUGS (15)
  1. PREDNISOLONE [Suspect]
     Active Substance: PREDNISOLONE
     Indication: Product used for unknown indication
     Dosage: 10 MILLIGRAM, QD, (5 MG BID)
     Route: 065
  2. XGEVA [Suspect]
     Active Substance: DENOSUMAB
     Indication: Prophylaxis
     Dosage: 120 MILLIGRAM, Q4WK
     Route: 058
  3. XGEVA [Suspect]
     Active Substance: DENOSUMAB
     Dosage: 120 MILLIGRAM, Q4WK
     Route: 058
     Dates: start: 20210129
  4. CALCIUM CARBONATE\CHOLECALCIFEROL\MINERALS [Concomitant]
     Active Substance: CALCIUM CARBONATE\CHOLECALCIFEROL\MINERALS
     Dosage: 500 MILLIGRAM, QD (1.25G/400IE)
     Route: 065
  5. GRANISETRON [Concomitant]
     Active Substance: GRANISETRON
     Dosage: 1 MILLIGRAM
     Route: 065
  6. METOCLOPRAMIDE [Concomitant]
     Active Substance: METOCLOPRAMIDE
     Dosage: 10 MILLIGRAM
     Route: 065
  7. PANTOPRAZOLE [Concomitant]
     Active Substance: PANTOPRAZOLE
     Dosage: 40 MILLIGRAM, QD
     Route: 065
  8. SILODOSIN [Concomitant]
     Active Substance: SILODOSIN
     Dosage: 8 MILLIGRAM, QD
     Route: 065
  9. LEUPROLIDE ACETATE [Concomitant]
     Active Substance: LEUPROLIDE ACETATE
     Dosage: UNK, (30MG 6M 1INJECTION)
     Route: 065
  10. BROMFENAC [Concomitant]
     Active Substance: BROMFENAC SODIUM
     Dosage: UNK, 0.9 MILLIGRAM PER MILLILITRE FL 5ML, 2D1DR
     Route: 065
  11. CANDESARTAN [Concomitant]
     Active Substance: CANDESARTAN
     Dosage: 8 MILLIGRAM, QD
     Route: 065
  12. TOBRAMYCIN AND DEXAMETHASONE [Concomitant]
     Active Substance: DEXAMETHASONE\TOBRAMYCIN
     Dosage: UNK, 3MG/ML FL 5ML, 3D1DR
     Route: 065
  13. PARAFFIN [Concomitant]
     Active Substance: PARAFFIN
     Dosage: UNK UNK, PRN (500 MILLIGRAM PER GRAM)
  14. POLYETHYLENE GLYCOLS [Concomitant]
     Active Substance: POLYETHYLENE GLYCOLS
     Dosage: UNK
     Route: 065
  15. VASELINE                           /01007601/ [Concomitant]
     Dosage: UNK UNK, PRN (500 MILLIGRAM PER GRAM)

REACTIONS (3)
  - Influenza like illness [Unknown]
  - Muscle spasms [Unknown]
  - Prostate cancer metastatic [Not Recovered/Not Resolved]

NARRATIVE: CASE EVENT DATE: 20210101
